FAERS Safety Report 12006789 (Version 1)
Quarter: 2016Q1

REPORT INFORMATION
  Report Type: Report from Study
  Country: DE (occurrence: DE)
  Receive Date: 20160204
  Receipt Date: 20160204
  Transmission Date: 20160526
  Serious: Yes (Other)
  Sender: FDA-Public Use
  Company Number: DE-GLAXOSMITHKLINE-DE2016GSK015409

PATIENT
  Age: 62 Year
  Sex: Male

DRUGS (3)
  1. TRIMETHOPRIM-SULFAMETHOXAZOLE [Concomitant]
     Active Substance: SULFAMETHOXAZOLE\TRIMETHOPRIM
     Indication: PRODUCT USED FOR UNKNOWN INDICATION
     Dosage: UNK
     Dates: end: 200907
  2. PENTAMIDINE INHALATION [Suspect]
     Active Substance: PENTAMIDINE
     Indication: TOXOPLASMOSIS PROPHYLAXIS
     Dosage: UNK
     Dates: start: 2009
  3. ATOVAQUONE. [Suspect]
     Active Substance: ATOVAQUONE
     Indication: TOXOPLASMOSIS PROPHYLAXIS
     Dosage: UNK
     Dates: start: 20090712, end: 20090829

REACTIONS (8)
  - Cerebral toxoplasmosis [Unknown]
  - Motor dysfunction [Unknown]
  - Extensor plantar response [Unknown]
  - Drug intolerance [Unknown]
  - Speech disorder [Unknown]
  - Neurological symptom [Unknown]
  - Central nervous system lesion [Unknown]
  - Tetany [Unknown]

NARRATIVE: CASE EVENT DATE: 20090714
